FAERS Safety Report 8911392 (Version 1)
Quarter: 2012Q4

REPORT INFORMATION
  Report Type: 
  Country: US (occurrence: US)
  Receive Date: 20121116
  Receipt Date: 20121116
  Transmission Date: 20130627
  Serious: Yes (Hospitalization, Other)
  Sender: FDA-Public Use
  Company Number: US-009507513-1211USA006627

PATIENT
  Sex: Male

DRUGS (1)
  1. PEG-INTRON [Suspect]
     Indication: HEPATITIS C
     Dosage: UNK,vial
     Dates: start: 20050107, end: 20050218

REACTIONS (4)
  - Wound infection staphylococcal [Unknown]
  - Hepatic cancer [Unknown]
  - Pruritus [Unknown]
  - Pruritus [Unknown]
